FAERS Safety Report 15312705 (Version 2)
Quarter: 2018Q3

REPORT INFORMATION
  Report Type: Spontaneous
  Country: US (occurrence: US)
  Receive Date: 20180823
  Receipt Date: 20180830
  Transmission Date: 20181010
  Serious: Yes (Life-Threatening, Other)
  Sender: FDA-Public Use
  Company Number: US-PFIZER INC-2018336794

PATIENT
  Age: 7 Year
  Sex: Male

DRUGS (3)
  1. ETOPOSIDE. [Suspect]
     Active Substance: ETOPOSIDE
     Indication: HODGKIN^S DISEASE STAGE IV
     Dosage: 100 MG/M2, CYCLIC (DAYS 1?3, CYCLES 1,2)
     Route: 042
  2. IFOSFAMIDE. [Suspect]
     Active Substance: IFOSFAMIDE
     Indication: HODGKIN^S DISEASE STAGE IV
     Dosage: 1500 MG/M2, CYCLIC, (DAYS 1?3, CYCLES 1, 2)
     Route: 042
  3. CARBOPLATIN. [Suspect]
     Active Substance: CARBOPLATIN
     Indication: HODGKIN^S DISEASE STAGE IV
     Dosage: 400 MG/M2, CYCLIC (DAY 1, CYCLES 1, 2)
     Route: 042

REACTIONS (5)
  - Cholecystitis [Unknown]
  - Vomiting [Unknown]
  - Neutropenia [Unknown]
  - Condition aggravated [Unknown]
  - Ataxia [Unknown]
